FAERS Safety Report 7334540-2 (Version None)
Quarter: 2011Q1

REPORT INFORMATION
  Report Type: 
  Country: None (occurrence: None)
  Receive Date: 20110307
  Receipt Date: 20110104
  Transmission Date: 20110831
  Serious: No
  Sender: FDA-Public Use
  Company Number: US-KINGPHARMUSA00001-K201100087

PATIENT
  Sex: Male

DRUGS (3)
  1. EMBEDA [Suspect]
     Indication: ARTHRITIS
  2. EMBEDA [Suspect]
     Indication: ARTHRALGIA
  3. EMBEDA [Suspect]
     Indication: BACK PAIN
     Dosage: 80 MG, BID
     Route: 048
     Dates: start: 20101201, end: 20101201

REACTIONS (1)
  - ABDOMINAL PAIN [None]
